FAERS Safety Report 16013320 (Version 1)
Quarter: 2019Q1

REPORT INFORMATION
  Report Type: Spontaneous
  Country: US (occurrence: US)
  Receive Date: 20190227
  Receipt Date: 20190227
  Transmission Date: 20190418
  Serious: Yes (Hospitalization)
  Sender: FDA-Public Use
  Company Number: None

PATIENT
  Age: 65 Year
  Sex: Female
  Weight: 89 kg

DRUGS (7)
  1. METOPROLOL ER 50 MG PO DAILY [Concomitant]
     Dates: start: 20190220
  2. PANTOPRAZOLE 20 MG PO DAILY [Concomitant]
     Dates: start: 20150401
  3. JARDIANCE [Suspect]
     Active Substance: EMPAGLIFLOZIN
     Indication: TYPE 2 DIABETES MELLITUS
     Route: 048
     Dates: start: 20190214, end: 20190224
  4. DULAGLUTIDE (TRULICITY) 1.5 MG SC WEEKLY [Concomitant]
     Dates: start: 20160325
  5. LEVOTHYROXINE 50 MCG PO DAILY [Concomitant]
     Dates: start: 20160325
  6. APIXABAN 5 MG PO TWICE DAILY [Concomitant]
     Dates: start: 20180424
  7. ATORVASTATIN 10 MG PO DAILY [Concomitant]
     Dates: start: 20160325

REACTIONS (5)
  - Atrial fibrillation [None]
  - Dehydration [None]
  - Vomiting [None]
  - Anion gap increased [None]
  - Nausea [None]

NARRATIVE: CASE EVENT DATE: 20190225
